FAERS Safety Report 4539862-6 (Version None)
Quarter: 2004Q4

REPORT INFORMATION
  Report Type: 
  Country: None (occurrence: None)
  Receive Date: 20041222
  Receipt Date: 20041207
  Transmission Date: 20050328
  Serious: Yes (Hospitalization)
  Sender: FDA-Public Use
  Company Number: A03200403525

PATIENT
  Age: 49 Year
  Sex: Female
  Weight: 63.05 kg

DRUGS (7)
  1. ELOXATIN [Suspect]
     Indication: COLON CANCER METASTATIC
     Dosage: 168 MG Q2W - INTRAVENOUS NOS
     Route: 042
     Dates: start: 20041004, end: 20041004
  2. AVASTIN [Suspect]
     Indication: COLON CANCER METASTATIC
     Dosage: 318 MG Q2W - INTRAVENOUS NOS
     Route: 042
     Dates: start: 20041004, end: 20041004
  3. FLUOROURACIL [Suspect]
     Indication: COLON CANCER METASTATIC
     Dosage: 675 MG IV PUSH, FOLLOWED BY 4032 MG OVER 48 HOURS - INTRAVENOUS NOS
     Route: 042
     Dates: start: 20041004, end: 20041004
  4. PROMETHAZINE HCL [Concomitant]
  5. POTASSIUM [Concomitant]
  6. ZOLPIDEM TARTRATE [Concomitant]
  7. HYOSCYAMINE SULFATE [Concomitant]

REACTIONS (3)
  - CARDIAC FAILURE CONGESTIVE [None]
  - PLEURAL EFFUSION [None]
  - WEIGHT INCREASED [None]
